FAERS Safety Report 20705135 (Version 1)
Quarter: 2022Q2

REPORT INFORMATION
  Report Type: Report from Study
  Country: FR (occurrence: FR)
  Receive Date: 20220413
  Receipt Date: 20220413
  Transmission Date: 20220721
  Serious: Yes (Other)
  Sender: FDA-Public Use
  Company Number: FR-AMGEN-FRANI2022052707

PATIENT
  Age: 69 Year
  Sex: Female

DRUGS (16)
  1. METHOTREXATE SODIUM [Suspect]
     Active Substance: METHOTREXATE SODIUM
     Indication: Product used for unknown indication
     Dosage: 25 MG, WEEKLY
     Route: 048
     Dates: start: 2007
  2. OTEZLA [Suspect]
     Active Substance: APREMILAST
     Indication: Psoriasis
     Dosage: 30 MG, 2X/DAY
     Route: 048
     Dates: start: 20170227
  3. DIPROSONE NEOMYCINE [Concomitant]
     Dates: start: 20171128
  4. TRULICITY [Concomitant]
     Active Substance: DULAGLUTIDE
     Dosage: UNK
     Dates: start: 202009
  5. COSENTYX [Concomitant]
     Active Substance: SECUKINUMAB
     Dosage: 300 MG, WEEKLY
     Route: 058
     Dates: start: 20171128
  6. ACITRETIN [Concomitant]
     Active Substance: ACITRETIN
     Dosage: 10 MG, 1X/DAY
     Route: 048
     Dates: start: 2005
  7. CLOBEX [CLOBETASOL PROPIONATE] [Concomitant]
     Dosage: UNK
     Dates: start: 20171128
  8. CLARITHROMYCIN [Concomitant]
     Active Substance: CLARITHROMYCIN
     Dosage: UNK
     Dates: start: 20171127
  9. PICATO [Concomitant]
     Active Substance: INGENOL MEBUTATE
     Dosage: UNK
     Dates: start: 20180413
  10. DOLIPRANE [Concomitant]
     Active Substance: ACETAMINOPHEN
     Dosage: UNK
     Dates: start: 20171127
  11. METHYLPREDNISOLONE [Concomitant]
     Active Substance: METHYLPREDNISOLONE
     Dosage: UNK
     Dates: start: 20171127
  12. ONGLYZA [SAXAGLIPTIN] [Concomitant]
     Dosage: UNK
     Dates: start: 201804
  13. METFORMIN [Concomitant]
     Active Substance: METFORMIN HYDROCHLORIDE
     Dosage: UNK
     Dates: start: 201804
  14. GLICLAZIDE [Concomitant]
     Active Substance: GLICLAZIDE
     Dates: start: 201804
  15. ALBUTEROL SULFATE [Concomitant]
     Active Substance: ALBUTEROL SULFATE
     Dates: start: 19480702
  16. CRESTOR [Concomitant]
     Active Substance: ROSUVASTATIN CALCIUM
     Dates: start: 20210315

REACTIONS (2)
  - Squamous cell carcinoma [Recovered/Resolved]
  - Actinic keratosis [Recovered/Resolved]

NARRATIVE: CASE EVENT DATE: 20171213
